FAERS Safety Report 9375770 (Version 2)
Quarter: 2013Q3

REPORT INFORMATION
  Report Type: Spontaneous
  Country: DE (occurrence: DE)
  Receive Date: 20130628
  Receipt Date: 20130709
  Transmission Date: 20140515
  Serious: Yes (Death)
  Sender: FDA-Public Use
  Company Number: DE-BAXTER-2013BAX023597

PATIENT
  Age: 65 Year
  Sex: Male

DRUGS (2)
  1. PHYSIONEAL 40 GLUCOSE 1,36 % W/V 13,6 MG/ML PERITONEALDIALYSEL?SUNG [Suspect]
     Indication: PERITONEAL DIALYSIS
     Route: 033
     Dates: start: 20100604
  2. EXTRANEAL [Suspect]
     Indication: PERITONEAL DIALYSIS
     Route: 033
     Dates: start: 20100604

REACTIONS (2)
  - Myocardial infarction [Fatal]
  - Acute pulmonary oedema [Fatal]
